FAERS Safety Report 5445071-9 (Version None)
Quarter: 2007Q3

REPORT INFORMATION
  Report Type: 
  Country: None (occurrence: None)
  Receive Date: 20070906
  Receipt Date: 20070824
  Transmission Date: 20080115
  Serious: Yes (Death, Hospitalization, Other)
  Sender: FDA-Public Use
  Company Number: US-PFIZER INC-2006108994

PATIENT
  Sex: Female
  Weight: 73.9 kg

DRUGS (2)
  1. SUTENT [Suspect]
     Indication: METASTATIC RENAL CELL CARCINOMA
     Route: 048
     Dates: start: 20060809, end: 20060829
  2. SUTENT [Suspect]
     Dosage: TEXT:3 CAPSULES DAILY

REACTIONS (12)
  - ANXIETY [None]
  - DEATH [None]
  - DISEASE PROGRESSION [None]
  - DYSPNOEA [None]
  - EJECTION FRACTION DECREASED [None]
  - HYPOXIA [None]
  - LUNG INFILTRATION [None]
  - METASTATIC RENAL CELL CARCINOMA [None]
  - PURPURA [None]
  - PYREXIA [None]
  - RADIATION PNEUMONITIS [None]
  - RESPIRATORY FAILURE [None]
